FAERS Safety Report 15901621 (Version 3)
Quarter: 2019Q2

REPORT INFORMATION
  Report Type: Report from Study
  Country: US (occurrence: US)
  Receive Date: 20190201
  Receipt Date: 20190605
  Transmission Date: 20190711
  Serious: Yes (Hospitalization, Other)
  Sender: FDA-Public Use
  Company Number: US-ADAMAS PHARMA, LLC-2019ADA00029

PATIENT
  Age: 86 Year
  Sex: Female
  Weight: 69.84 kg

DRUGS (24)
  1. SEROQUEL [Suspect]
     Active Substance: QUETIAPINE FUMARATE
     Indication: HALLUCINATION
     Dosage: UNK
     Dates: start: 20181225, end: 201812
  2. SEROQUEL [Suspect]
     Active Substance: QUETIAPINE FUMARATE
     Indication: DEPRESSION
  3. RYTARY [Suspect]
     Active Substance: CARBIDOPA\LEVODOPA
     Dosage: 61.75 MG, 9X/DAY
     Dates: start: 20181225
  4. RYTARY [Suspect]
     Active Substance: CARBIDOPA\LEVODOPA
     Dosage: 4 CAPSULES, 3X/DAY
  5. TRAZODONE [Concomitant]
     Active Substance: TRAZODONE HYDROCHLORIDE
     Dosage: 100 MG, 1X/DAY
     Route: 048
     Dates: start: 201811
  6. LOSARTAN POTASSIUM AND HYDROCHLOROTHIAZIDE [Concomitant]
     Active Substance: HYDROCHLOROTHIAZIDE\LOSARTAN POTASSIUM
     Dosage: 1 TABLETS, 1X/DAY
     Route: 048
  7. LACTULOSE SOLUTION [Concomitant]
     Active Substance: LACTULOSE
     Dosage: UNK, 2X/DAY
  8. GOCOVRI [Suspect]
     Active Substance: AMANTADINE
     Indication: DYSKINESIA
     Dosage: 137 MG, 1X/DAY AT BEDTIME
     Route: 048
     Dates: start: 20180624, end: 20180630
  9. MYRBETRIQ [Concomitant]
     Active Substance: MIRABEGRON
  10. LEXAPRO [Concomitant]
     Active Substance: ESCITALOPRAM OXALATE
     Dosage: UNK
     Dates: end: 201811
  11. PENNSAID [Concomitant]
     Active Substance: DICLOFENAC SODIUM
  12. OMEPRAZOLE. [Concomitant]
     Active Substance: OMEPRAZOLE
     Dosage: 40 MG, 1X/DAY
     Route: 048
  13. UNSPECIFIED OVER THE COUNTER STOOL SOFTENER [Concomitant]
  14. FOSAMAX [Concomitant]
     Active Substance: ALENDRONATE SODIUM
     Dosage: UNK, 1X/WEEK
  15. EXELON [Concomitant]
     Active Substance: RIVASTIGMINE TARTRATE
     Dosage: 1 DOSAGE UNITS, 1X/DAY
     Route: 062
  16. NUEDEXTA [Concomitant]
     Active Substance: DEXTROMETHORPHAN HYDROBROMIDE\QUINIDINE SULFATE
     Dosage: 1 CAPSULES, 2X/DAY (EVERY 12 HOURS)
     Route: 048
  17. RYTARY [Suspect]
     Active Substance: CARBIDOPA\LEVODOPA
     Indication: PARKINSON^S DISEASE
     Dosage: UNK
     Route: 048
     Dates: end: 20181224
  18. CITRICAL + D [Concomitant]
  19. MELOXICAM. [Concomitant]
     Active Substance: MELOXICAM
     Dosage: 15 MG, 1X/DAY
     Route: 048
  20. LIPITOR [Concomitant]
     Active Substance: ATORVASTATIN CALCIUM
     Dosage: 10 MG, 1X/DAY
     Route: 048
  21. GOCOVRI [Suspect]
     Active Substance: AMANTADINE
     Dosage: 274 MG, 1X/DAY AT BEDTIME
     Route: 048
     Dates: start: 20180701, end: 2019
  22. TEMAZEPAM. [Suspect]
     Active Substance: TEMAZEPAM
     Dosage: UNK
     Dates: start: 20180606, end: 20190101
  23. RYTARY [Suspect]
     Active Substance: CARBIDOPA\LEVODOPA
     Dosage: 3 CAPSULES, 3X/DAY (EVERY 8 HOURS)
     Dates: start: 201901
  24. ESCITALOPRAM [Concomitant]
     Active Substance: ESCITALOPRAM OXALATE
     Dosage: 10 MG, 1X/DAY
     Route: 048
     Dates: start: 20181225

REACTIONS (21)
  - Gouty arthritis [Not Recovered/Not Resolved]
  - Urinary tract infection [Unknown]
  - Malaise [Unknown]
  - Skin lesion [Not Recovered/Not Resolved]
  - Cataract [Recovered/Resolved]
  - Decreased appetite [Unknown]
  - Gait inability [Unknown]
  - Unevaluable event [Unknown]
  - Dyskinesia [Recovering/Resolving]
  - Lethargy [Unknown]
  - Pain [Not Recovered/Not Resolved]
  - Blood pressure fluctuation [Unknown]
  - Tremor [Recovering/Resolving]
  - Weight increased [Not Recovered/Not Resolved]
  - Cataract operation [Recovered/Resolved]
  - Gait disturbance [Not Recovered/Not Resolved]
  - Dementia [Not Recovered/Not Resolved]
  - Hospitalisation [Recovered/Resolved]
  - Psychotic disorder [Not Recovered/Not Resolved]
  - Dyspnoea [Unknown]
  - Hallucination, visual [Recovering/Resolving]

NARRATIVE: CASE EVENT DATE: 2018
